FAERS Safety Report 6516765-9 (Version None)
Quarter: 2009Q4

REPORT INFORMATION
  Report Type: 
  Country: None (occurrence: None)
  Receive Date: 20091223
  Receipt Date: 20091217
  Transmission Date: 20100525
  Serious: Yes (Hospitalization)
  Sender: FDA-Public Use
  Company Number: FR-ASTRAZENECA-2009SE32729

PATIENT
  Age: 84 Year
  Sex: Female

DRUGS (11)
  1. CRESTOR [Suspect]
     Route: 048
     Dates: end: 20090404
  2. FELDENE [Interacting]
     Indication: BACK PAIN
     Dates: start: 20090321, end: 20090331
  3. FELDENE [Interacting]
     Indication: SCIATICA
     Dates: start: 20090321, end: 20090331
  4. TRAMADOL HCL [Interacting]
     Indication: BACK PAIN
     Route: 048
     Dates: start: 20090321, end: 20090331
  5. TRAMADOL HCL [Interacting]
     Indication: SCIATICA
     Route: 048
     Dates: start: 20090321, end: 20090331
  6. PREVISCAN [Interacting]
     Route: 048
     Dates: end: 20090404
  7. ACETAMINOPHEN [Suspect]
     Indication: BACK PAIN
     Route: 048
     Dates: start: 20090331
  8. ACETAMINOPHEN [Suspect]
     Indication: SCIATICA
     Route: 048
     Dates: start: 20090331
  9. CORVASAL [Concomitant]
  10. FLODIL LP [Concomitant]
  11. BROMAZEPAM [Concomitant]

REACTIONS (4)
  - DRUG INTERACTION [None]
  - LIVER FUNCTION TEST ABNORMAL [None]
  - OVERDOSE [None]
  - RENAL FAILURE ACUTE [None]
